FAERS Safety Report 16162165 (Version 1)
Quarter: 2019Q2

REPORT INFORMATION
  Report Type: Spontaneous
  Country: JP (occurrence: JP)
  Receive Date: 20190405
  Receipt Date: 20190405
  Transmission Date: 20190711
  Serious: Yes (Other)
  Sender: FDA-Public Use
  Company Number: JP-MICRO LABS LIMITED-ML2019-00827

PATIENT
  Age: 40 Year
  Sex: Female

DRUGS (2)
  1. DICLOFENAC [Suspect]
     Active Substance: DICLOFENAC
  2. LEVOFLOXACIN. [Suspect]
     Active Substance: LEVOFLOXACIN

REACTIONS (1)
  - Stevens-Johnson syndrome [Unknown]
